FAERS Safety Report 9913127 (Version 1)
Quarter: 2014Q1

REPORT INFORMATION
  Report Type: Spontaneous
  Country: US (occurrence: None)
  Receive Date: 20140218
  Receipt Date: 20140218
  Transmission Date: 20141002
  Serious: Yes (Disabling, Other)
  Sender: FDA-Public Use
  Company Number: None

PATIENT
  Age: 61 Year
  Sex: Female
  Weight: 65.32 kg

DRUGS (11)
  1. DULOXETINE HCL [Suspect]
     Indication: ANXIETY
     Route: 048
     Dates: start: 2011, end: 20140128
  2. DULOXETINE HCL [Suspect]
     Indication: DEPRESSION
     Route: 048
     Dates: start: 2011, end: 20140128
  3. NEXIUM [Concomitant]
  4. ROPINEROL [Concomitant]
  5. LOSARTAN [Concomitant]
  6. CYMBALTA [Concomitant]
  7. LUNESTA [Concomitant]
  8. ALIGN [Concomitant]
  9. CALCIUM CTRATE [Concomitant]
  10. IRON [Concomitant]
  11. VITAMIN D [Concomitant]

REACTIONS (9)
  - Retching [None]
  - Nausea [None]
  - Depression [None]
  - Asthenia [None]
  - Abdominal discomfort [None]
  - Flatulence [None]
  - Abdominal distension [None]
  - Constipation [None]
  - Malaise [None]
